FAERS Safety Report 16845712 (Version 1)
Quarter: 2019Q3

REPORT INFORMATION
  Report Type: Spontaneous
  Country: US (occurrence: US)
  Receive Date: 20190924
  Receipt Date: 20190924
  Transmission Date: 20191005
  Serious: No
  Sender: FDA-Public Use
  Company Number: US-ASSERTIO THERAPEUTICS, INC.-US-2019DEP000348

PATIENT
  Sex: Male

DRUGS (2)
  1. GRALISE [Suspect]
     Active Substance: GABAPENTIN
     Indication: PRODUCT USED FOR UNKNOWN INDICATION
     Dosage: 1500 MG, QD
     Route: 048
     Dates: start: 20190204
  2. GRALISE [Suspect]
     Active Substance: GABAPENTIN
     Dosage: 1800 MG, UNK
     Route: 048

REACTIONS (2)
  - Feeling abnormal [Unknown]
  - Impaired driving ability [Unknown]
